FAERS Safety Report 10171368 (Version 1)
Quarter: 2014Q2

REPORT INFORMATION
  Report Type: Spontaneous
  Country: CA (occurrence: CA)
  Receive Date: 20140514
  Receipt Date: 20140514
  Transmission Date: 20141212
  Serious: Yes (Hospitalization)
  Sender: FDA-Public Use
  Company Number: CA-009507513-1405CAN005434

PATIENT
  Age: 25 Year
  Sex: Male

DRUGS (1)
  1. REMERON [Suspect]
     Dosage: DOSE: 30 MILIGRAM; 1 EVERY 1 DAY(S)
     Route: 048

REACTIONS (3)
  - Nightmare [Recovering/Resolving]
  - Abnormal dreams [Recovering/Resolving]
  - Anxiety [Recovering/Resolving]
